FAERS Safety Report 17324918 (Version 2)
Quarter: 2020Q1

REPORT INFORMATION
  Report Type: Spontaneous
  Country: US (occurrence: US)
  Receive Date: 20200127
  Receipt Date: 20200303
  Transmission Date: 20200409
  Serious: Yes (Hospitalization, Other)
  Sender: FDA-Public Use
  Company Number: US-JAZZ-2020-US-000969

PATIENT
  Age: 39 Year
  Sex: Male

DRUGS (1)
  1. XYREM [Suspect]
     Active Substance: SODIUM OXYBATE
     Indication: PRODUCT USED FOR UNKNOWN INDICATION
     Dosage: UNKNOWN DOSE
     Route: 048

REACTIONS (15)
  - Hyperventilation [Recovered/Resolved]
  - Electrolyte imbalance [Recovered/Resolved]
  - Fall [Recovered/Resolved]
  - Retention cyst [Unknown]
  - Respiratory depression [Recovered/Resolved]
  - Confusional state [Recovered/Resolved]
  - Facial bones fracture [Unknown]
  - Anxiety [Unknown]
  - Anion gap increased [Recovered/Resolved]
  - Face injury [Unknown]
  - Intentional overdose [Unknown]
  - Hypertension [Recovered/Resolved]
  - Suspected suicide attempt [Unknown]
  - Agitation [Recovered/Resolved]
  - Periorbital haematoma [Unknown]
